FAERS Safety Report 25168989 (Version 1)
Quarter: 2025Q2

REPORT INFORMATION
  Report Type: Spontaneous
  Country: US (occurrence: US)
  Receive Date: 20250407
  Receipt Date: 20250407
  Transmission Date: 20250716
  Serious: Yes (Other)
  Sender: BIOVITRUM
  Company Number: US-BIOVITRUM-2025-US-004553

PATIENT
  Age: 78 Year
  Sex: Male

DRUGS (1)
  1. PACRITINIB [Suspect]
     Active Substance: PACRITINIB
     Indication: Myelodysplastic syndrome

REACTIONS (2)
  - Streptococcal bacteraemia [Unknown]
  - Off label use [Unknown]
